FAERS Safety Report 9203575 (Version 1)
Quarter: 2013Q1

REPORT INFORMATION
  Report Type: Spontaneous
  Country: US (occurrence: None)
  Receive Date: 20120709
  Receipt Date: 20120709
  Transmission Date: 20140127
  Serious: Yes (Disabling)
  Sender: FDA-Public Use
  Company Number: PHHY2011US69657

PATIENT
  Sex: Male

DRUGS (1)
  1. GLEEVEC [Suspect]
     Indication: CONNECTIVE TISSUE NEOPLASM
     Route: 048
     Dates: start: 20110602, end: 201108

REACTIONS (1)
  - Diarrhoea [None]
